FAERS Safety Report 7459233-2 (Version None)
Quarter: 2011Q2

REPORT INFORMATION
  Report Type: 
  Country: None (occurrence: None)
  Receive Date: 20110505
  Receipt Date: 20110421
  Transmission Date: 20111010
  Serious: Yes (Other)
  Sender: FDA-Public Use
  Company Number: CH-RANBAXY-2011RR-44102

PATIENT
  Age: 60 Year
  Sex: Female

DRUGS (2)
  1. RISPERIDONE [Suspect]
     Indication: SCHIZOAFFECTIVE DISORDER
     Dosage: 6 MG/DAY
  2. LITHIUM CARBONATE [Suspect]

REACTIONS (7)
  - SALIVARY HYPERSECRETION [None]
  - DRUG INTERACTION [None]
  - NEUROTOXICITY [None]
  - PYREXIA [None]
  - CHILLS [None]
  - SENSORY DISTURBANCE [None]
  - ATAXIA [None]
